FAERS Safety Report 8264009-2 (Version None)
Quarter: 2012Q2

REPORT INFORMATION
  Report Type: 
  Country: None (occurrence: None)
  Receive Date: 20120406
  Receipt Date: 20120329
  Transmission Date: 20120825
  Serious: No
  Sender: FDA-Public Use
  Company Number: US-BIOGENIDEC-2011BI041671

PATIENT
  Sex: Female

DRUGS (1)
  1. TYSABRI [Suspect]
     Indication: MULTIPLE SCLEROSIS
     Route: 042
     Dates: start: 20111027

REACTIONS (10)
  - ARTHRALGIA [None]
  - DRUG INEFFECTIVE [None]
  - PAIN IN EXTREMITY [None]
  - DYSPNOEA [None]
  - LOWER EXTREMITY MASS [None]
  - ANXIETY [None]
  - UPPER EXTREMITY MASS [None]
  - HEADACHE [None]
  - CHEST PAIN [None]
  - CHEST DISCOMFORT [None]
